FAERS Safety Report 23614528 (Version 1)
Quarter: 2024Q1

REPORT INFORMATION
  Report Type: Spontaneous
  Country: FR (occurrence: FR)
  Receive Date: 20240311
  Receipt Date: 20240311
  Transmission Date: 20240410
  Serious: Yes (Other)
  Sender: FDA-Public Use
  Company Number: FR-TAKEDA-2024TUS017301

PATIENT
  Sex: Female

DRUGS (2)
  1. BENDAMUSTINE [Suspect]
     Active Substance: BENDAMUSTINE
     Indication: Composite lymphoma
     Dosage: UNK
     Route: 065
  2. ADCETRIS [Suspect]
     Active Substance: BRENTUXIMAB VEDOTIN
     Indication: Composite lymphoma
     Dosage: UNK
     Route: 065

REACTIONS (1)
  - Guillain-Barre syndrome [Unknown]
